FAERS Safety Report 19960076 (Version 1)
Quarter: 2021Q4

REPORT INFORMATION
  Report Type: Spontaneous
  Country: BR (occurrence: BR)
  Receive Date: 20211015
  Receipt Date: 20211015
  Transmission Date: 20220303
  Serious: Yes (Death, Other)
  Sender: FDA-Public Use
  Company Number: BR-BAYER-2021A230680

PATIENT
  Age: 61 Year
  Sex: Female

DRUGS (4)
  1. STIVARGA [Suspect]
     Active Substance: REGORAFENIB
     Indication: Adenocarcinoma of colon
     Dosage: 80 MG, D1 TO D21, EACH 28 CYCLES
     Route: 048
     Dates: start: 202001
  2. STIVARGA [Suspect]
     Active Substance: REGORAFENIB
     Indication: Metastases to liver
     Dosage: 120 MG, D1 TO D21, EACH 28 CYCLES
     Route: 048
  3. STIVARGA [Suspect]
     Active Substance: REGORAFENIB
     Indication: Metastases to pleura
     Dosage: 160 MG, D1 TO D21, EACH 28 CYCLES
     Route: 048
  4. PURAN [Concomitant]
     Active Substance: LEVOTHYROXINE SODIUM
     Indication: Hypothyroidism
     Dosage: 50 ?G, QD

REACTIONS (10)
  - Intestinal obstruction [Fatal]
  - Abdominal sepsis [Fatal]
  - Adenocarcinoma of colon [None]
  - Metastases to pleura [None]
  - Metastases to lymph nodes [None]
  - Metastases to liver [None]
  - Metastases to lung [None]
  - Hypoventilation [None]
  - Fatigue [None]
  - Off label use [None]

NARRATIVE: CASE EVENT DATE: 20200101
